FAERS Safety Report 17124999 (Version 2)
Quarter: 2019Q4

REPORT INFORMATION
  Report Type: Spontaneous
  Country: FR (occurrence: FR)
  Receive Date: 20191206
  Receipt Date: 20191227
  Transmission Date: 20200122
  Serious: Yes (Other)
  Sender: FDA-Public Use
  Company Number: FR-009507513-1912FRA002209

PATIENT
  Age: 58 Year
  Sex: Male

DRUGS (1)
  1. GRAZOPREVIR (+) ELBASVIR [Suspect]
     Active Substance: ELBASVIR\GRAZOPREVIR
     Indication: HEPATITIS C
     Dosage: 1 DOSAGE FORM 1 EVERY 1 DAY, NUMBER OF SEPARATE DOSES: 100/50 MG
     Route: 048
     Dates: start: 20150202, end: 20150427

REACTIONS (1)
  - Hepatocellular carcinoma [Unknown]

NARRATIVE: CASE EVENT DATE: 20180227
